FAERS Safety Report 10655846 (Version 2)
Quarter: 2014Q4

REPORT INFORMATION
  Report Type: Spontaneous
  Country: US (occurrence: US)
  Receive Date: 20141216
  Receipt Date: 20141216
  Transmission Date: 20150529
  Serious: Yes (Hospitalization, Other)
  Sender: FDA-Public Use
  Company Number: US-BANPHARM-20143276

PATIENT
  Age: 73 Year
  Sex: Female
  Weight: 53.52 kg

DRUGS (4)
  1. SYNTHROID [Concomitant]
     Active Substance: LEVOTHYROXINE SODIUM
  2. ALEVE [Suspect]
     Active Substance: NAPROXEN SODIUM
     Indication: PAIN
     Dosage: 1 DF, QD,
     Route: 048
     Dates: start: 201410
  3. ALEVE [Suspect]
     Active Substance: NAPROXEN SODIUM
     Indication: PAIN
     Dosage: ONCE DAILY,
     Dates: start: 201410
  4. ALEVE PM [Suspect]
     Active Substance: DIPHENHYDRAMINE HYDROCHLORIDE\NAPROXEN SODIUM
     Indication: PAIN
     Dosage: 1 DF, QD,
     Dates: start: 201411

REACTIONS (11)
  - Haemorrhage [Unknown]
  - Flatulence [Recovered/Resolved]
  - Dizziness [Recovered/Resolved]
  - Oesophagitis [Recovered/Resolved]
  - Dizziness [Recovered/Resolved]
  - Faeces discoloured [Unknown]
  - Movement disorder [Recovered/Resolved]
  - Gastrointestinal haemorrhage [Unknown]
  - Ulcer haemorrhage [Unknown]
  - Incorrect drug administration duration [Unknown]
  - Fall [Recovered/Resolved]

NARRATIVE: CASE EVENT DATE: 2014
